FAERS Safety Report 24008144 (Version 3)
Quarter: 2025Q1

REPORT INFORMATION
  Report Type: Report from Study
  Country: US (occurrence: US)
  Receive Date: 20240625
  Receipt Date: 20250304
  Transmission Date: 20250408
  Serious: Yes (Other)
  Sender: ROCHE
  Company Number: US-ROCHE-3016673

PATIENT
  Age: 59 Year
  Sex: Female
  Weight: 81.65 kg

DRUGS (14)
  1. ACTEMRA [Suspect]
     Active Substance: TOCILIZUMAB
     Indication: Rheumatoid arthritis
     Dosage: 162MG/0.9ML
     Route: 058
  2. ACTEMRA [Suspect]
     Active Substance: TOCILIZUMAB
     Indication: Systemic lupus erythematosus
  3. ACTEMRA [Suspect]
     Active Substance: TOCILIZUMAB
     Indication: Polyarthritis
  4. RITUXAN [Suspect]
     Active Substance: RITUXIMAB
     Indication: Rheumatoid arthritis
     Route: 065
     Dates: start: 20151002
  5. TYLENOL [Concomitant]
     Active Substance: ACETAMINOPHEN
  6. XANAX [Concomitant]
     Active Substance: ALPRAZOLAM
  7. ASPIRIN [Concomitant]
     Active Substance: ASPIRIN
     Route: 048
  8. FIORICET [Concomitant]
     Active Substance: ACETAMINOPHEN\BUTALBITAL\CAFFEINE
  9. VITAMIN D [Concomitant]
     Active Substance: VITAMIN D NOS
  10. FOLVITE [Concomitant]
     Active Substance: FOLIC ACID
  11. METHOTREXATE [Concomitant]
     Active Substance: METHOTREXATE
     Dosage: 25MG/ML
  12. CRESTOR [Concomitant]
     Active Substance: ROSUVASTATIN CALCIUM
  13. ULTRAM [Concomitant]
     Active Substance: TRAMADOL HYDROCHLORIDE
  14. AMBIEN [Concomitant]
     Active Substance: ZOLPIDEM TARTRATE

REACTIONS (20)
  - Condition aggravated [Unknown]
  - Cerebrovascular accident [Unknown]
  - Blindness [Unknown]
  - Osteoarthritis [Unknown]
  - Nephrolithiasis [Unknown]
  - Carpal tunnel syndrome [Unknown]
  - Migraine [Unknown]
  - Headache [Unknown]
  - Pneumonia [Unknown]
  - Urticaria [Unknown]
  - Butterfly rash [Unknown]
  - Photosensitivity reaction [Unknown]
  - Arthralgia [Unknown]
  - Alopecia [Unknown]
  - Mouth ulceration [Unknown]
  - Antinuclear antibody positive [Unknown]
  - Raynaud^s phenomenon [Unknown]
  - Polycystic ovarian syndrome [Unknown]
  - Drug ineffective [Unknown]
  - Off label use [Unknown]
